FAERS Safety Report 11246972 (Version 1)
Quarter: 2015Q3

REPORT INFORMATION
  Report Type: Spontaneous
  Country: US (occurrence: None)
  Receive Date: 20150706
  Receipt Date: 20150706
  Transmission Date: 20151125
  Serious: Yes (Death, Hospitalization)
  Sender: FDA-Public Use
  Company Number: US-ACS-000212

PATIENT
  Age: 48 Year
  Sex: Male

DRUGS (2)
  1. CEFAZOLIN [Suspect]
     Active Substance: CEFAZOLIN
     Indication: STAPHYLOCOCCAL INFECTION
     Route: 041
  2. RIFAMPICIN [Concomitant]
     Active Substance: RIFAMPIN

REACTIONS (2)
  - Cardiac failure congestive [None]
  - Drug ineffective [None]
